FAERS Safety Report 5875241-7 (Version None)
Quarter: 2008Q3

REPORT INFORMATION
  Report Type: 
  Country: None (occurrence: None)
  Receive Date: 20080909
  Receipt Date: 20080901
  Transmission Date: 20090109
  Serious: Yes (Hospitalization)
  Sender: FDA-Public Use
  Company Number: CH-ASTRAZENECA-2008PK01948

PATIENT
  Age: 52 Year
  Sex: Female

DRUGS (15)
  1. SEROQUEL [Suspect]
     Dosage: 100 MG TO 400 MG
     Route: 048
     Dates: start: 20080515, end: 20080528
  2. SEROQUEL [Suspect]
     Route: 048
     Dates: start: 20080529
  3. TRUXAL [Suspect]
     Dosage: 25 MG TO 50 MG
     Route: 048
     Dates: start: 20060101, end: 20080513
  4. TRUXAL [Suspect]
     Dosage: 75 MG TO 110 MG
     Route: 048
     Dates: start: 20080514, end: 20080604
  5. TRUXAL [Suspect]
     Route: 048
     Dates: start: 20080605, end: 20080609
  6. HALDOL [Suspect]
     Route: 048
     Dates: start: 20080526, end: 20080529
  7. HALDOL [Suspect]
     Route: 048
     Dates: start: 20080530, end: 20080606
  8. HALDOL [Suspect]
     Route: 048
     Dates: start: 20080607, end: 20080610
  9. HALDOL [Suspect]
     Route: 048
     Dates: start: 20080611, end: 20080612
  10. AKINETON [Suspect]
     Route: 048
     Dates: start: 20080530, end: 20080601
  11. AKINETON [Suspect]
     Route: 048
     Dates: start: 20080602, end: 20080609
  12. AKINETON [Suspect]
     Route: 048
     Dates: start: 20080610, end: 20080611
  13. EUTHYROX [Concomitant]
     Dates: start: 19990101
  14. SORTIS [Concomitant]
     Route: 048
     Dates: start: 20070101
  15. TRITTICO [Concomitant]
     Dosage: 50 MG TO 200 MG
     Route: 048
     Dates: start: 20080514, end: 20080525

REACTIONS (2)
  - CONSTIPATION [None]
  - URINARY RETENTION [None]
